FAERS Safety Report 12272687 (Version 7)
Quarter: 2018Q2

REPORT INFORMATION
  Report Type: Report from Study
  Country: US (occurrence: US)
  Receive Date: 20160415
  Receipt Date: 20180403
  Transmission Date: 20180711
  Serious: Yes (Hospitalization, Other)
  Sender: FDA-Public Use
  Company Number: US-ACTELION-A-US2016-131445

PATIENT
  Age: 68 Year
  Sex: Female
  Weight: 41.72 kg

DRUGS (4)
  1. OPSUMIT [Suspect]
     Active Substance: MACITENTAN
     Indication: PULMONARY HYPERTENSION
     Dosage: 10 MG, QD
     Route: 048
  2. REMODULIN [Concomitant]
     Active Substance: TREPROSTINIL
  3. DILTIAZEM. [Concomitant]
     Active Substance: DILTIAZEM
  4. CARDIZEM [Concomitant]
     Active Substance: DILTIAZEM HYDROCHLORIDE

REACTIONS (9)
  - Anaemia [Unknown]
  - Catheter site pain [Unknown]
  - Viral infection [Unknown]
  - Cardiac valve disease [Unknown]
  - Transfusion [Unknown]
  - Mental status changes [Unknown]
  - Psychiatric evaluation [Unknown]
  - Fall [Unknown]
  - Heart valve replacement [Unknown]

NARRATIVE: CASE EVENT DATE: 201801
